FAERS Safety Report 6297802-6 (Version None)
Quarter: 2009Q3

REPORT INFORMATION
  Report Type: 
  Country: None (occurrence: None)
  Receive Date: 20090804
  Receipt Date: 20090804
  Transmission Date: 20100115
  Serious: Yes (Hospitalization)
  Sender: FDA-Public Use
  Company Number: None

PATIENT
  Age: 37 Year
  Sex: Female
  Weight: 56.6996 kg

DRUGS (1)
  1. EPIPEN [Suspect]

REACTIONS (3)
  - EXPIRED DRUG ADMINISTERED [None]
  - INCORRECT STORAGE OF DRUG [None]
  - PRODUCT COLOUR ISSUE [None]
